FAERS Safety Report 9674274 (Version 2)
Quarter: 2014Q1

REPORT INFORMATION
  Report Type: Spontaneous
  Country: GB (occurrence: GB)
  Receive Date: 20131107
  Receipt Date: 20140211
  Transmission Date: 20141002
  Serious: Yes (Life-Threatening, Hospitalization)
  Sender: FDA-Public Use
  Company Number: PHHY2013GB122868

PATIENT
  Age: 59 Year
  Sex: Female
  Weight: 100.8 kg

DRUGS (10)
  1. METHOTREXATE [Suspect]
     Indication: RHEUMATOID ARTHRITIS
     Dosage: 15 MG, UNK
     Route: 030
     Dates: start: 20130701, end: 20131011
  2. SIMVASTATIN [Concomitant]
  3. CITALOPRAM [Concomitant]
  4. ETORICOXIB [Concomitant]
     Indication: RHEUMATOID ARTHRITIS
  5. LEVOTHYROXINE [Concomitant]
  6. METFORMIN [Concomitant]
  7. TRAMADOL [Concomitant]
  8. AMITRIPTYLINE [Concomitant]
  9. LANSOPRAZOLE [Concomitant]
  10. FOLIC ACID [Concomitant]

REACTIONS (4)
  - Exercise tolerance decreased [Unknown]
  - Rales [Unknown]
  - Interstitial lung disease [Recovering/Resolving]
  - Dyspnoea [Unknown]
